FAERS Safety Report 7779560-9 (Version None)
Quarter: 2011Q3

REPORT INFORMATION
  Report Type: 
  Country: None (occurrence: None)
  Receive Date: 20110927
  Receipt Date: 20110916
  Transmission Date: 20111222
  Serious: Yes (Hospitalization)
  Sender: FDA-Public Use
  Company Number: US-BAYER-2011-028483

PATIENT
  Age: 24 Year
  Sex: Female
  Weight: 81.633 kg

DRUGS (13)
  1. DROSPIRENONE AND ETHINYL ESTRADIOL [Suspect]
     Indication: CONTRACEPTION
     Dosage: UNK
     Dates: start: 20081001, end: 20081101
  2. FLUTICASONE PROPIONATE [Concomitant]
     Indication: MULTIPLE ALLERGIES
     Dosage: UNK
     Dates: start: 20080601, end: 20080701
  3. CLARITIN [Concomitant]
     Indication: MULTIPLE ALLERGIES
     Dosage: UNK
     Dates: start: 20080101
  4. LEVOTHYROXINE SODIUM [Concomitant]
     Dosage: UNK
     Dates: start: 20070101, end: 20110101
  5. DROSPIRENONE AND ETHINYL ESTRADIOL [Suspect]
     Indication: PREMENSTRUAL SYNDROME
  6. YAZ [Suspect]
     Indication: PREMENSTRUAL SYNDROME
  7. YASMIN [Suspect]
     Indication: PREMENSTRUAL SYNDROME
  8. TOPAMAX [Concomitant]
     Indication: MIGRAINE
     Dosage: UNK
     Dates: start: 20080101, end: 20090101
  9. YAZ [Suspect]
     Indication: CONTRACEPTION
     Dosage: UNK
     Dates: start: 20081101, end: 20090201
  10. CHERATUSSIN [CODEINE,GUAIFENESIN,PSEUDOEPHEDRINE] [Concomitant]
     Indication: COUGH
     Dosage: UNK
     Dates: start: 20080601, end: 20080701
  11. YASMIN [Suspect]
     Indication: CONTRACEPTION
     Dosage: UNK
     Dates: start: 20051001, end: 20081001
  12. PHENTERMINE [Concomitant]
     Indication: WEIGHT CONTROL
     Dosage: UNK
     Dates: start: 20080501, end: 20100301
  13. AMOXICILLIN [Concomitant]
     Indication: INFECTION
     Dosage: UNK
     Dates: start: 20080601, end: 20080701

REACTIONS (4)
  - CHOLELITHIASIS [None]
  - CHOLECYSTITIS CHRONIC [None]
  - ABDOMINAL PAIN [None]
  - PAIN [None]
